FAERS Safety Report 25144345 (Version 3)
Quarter: 2025Q2

REPORT INFORMATION
  Report Type: Report from Study
  Country: US (occurrence: US)
  Receive Date: 20250401
  Receipt Date: 20250529
  Transmission Date: 20250717
  Serious: No
  Sender: SUNOVION
  Company Number: US-SUMITOMO PHARMA SWITZERLAND GMBH-2025SPA002221

PATIENT

DRUGS (14)
  1. ORGOVYX [Suspect]
     Active Substance: RELUGOLIX
     Indication: Prostate cancer
     Dosage: 360 MG, SINGLE
     Route: 048
  2. ORGOVYX [Suspect]
     Active Substance: RELUGOLIX
     Dosage: 120 MG, QD
     Route: 048
     Dates: start: 20250220
  3. Alfalfa natural [Concomitant]
     Route: 048
  4. ASPIRIN [Concomitant]
     Active Substance: ASPIRIN
     Route: 048
  5. VITAMIN B COMPLEX [Concomitant]
     Active Substance: CYANOCOBALAMIN\DEXPANTHENOL\NIACINAMIDE\PYRIDOXINE HYDROCHLORIDE\RIBOFLAVIN 5^-PHOSPHATE SODIUM\THIA
     Route: 048
  6. COENZYME Q10 [Concomitant]
     Active Substance: DIETARY SUPPLEMENT\UBIDECARENONE
     Route: 048
  7. FISH OIL\OMEGA-3 FATTY ACIDS [Concomitant]
     Active Substance: FISH OIL\OMEGA-3 FATTY ACIDS
     Route: 048
  8. VITAMINS [Concomitant]
     Active Substance: VITAMINS
     Route: 048
  9. ELIQUIS [Concomitant]
     Active Substance: APIXABAN
     Route: 048
  10. Glucosamine Chondroitin Advanced [Concomitant]
     Route: 048
  11. LISINOPRIL [Concomitant]
     Active Substance: LISINOPRIL
     Route: 048
  12. TAMSULOSIN HYDROCHLORIDE [Concomitant]
     Active Substance: TAMSULOSIN HYDROCHLORIDE
     Route: 048
  13. VENLAFAXINE HCL [Concomitant]
     Active Substance: VENLAFAXINE HYDROCHLORIDE
     Route: 048
  14. XTANDI [Concomitant]
     Active Substance: ENZALUTAMIDE
     Route: 048

REACTIONS (6)
  - Abdominal distension [Unknown]
  - Night sweats [Unknown]
  - Heart rate increased [Unknown]
  - Epistaxis [Unknown]
  - Hot flush [Unknown]
  - Fatigue [Unknown]
